FAERS Safety Report 9051512 (Version 1)
Quarter: 2013Q1

REPORT INFORMATION
  Report Type: Spontaneous
  Country: CA (occurrence: CA)
  Receive Date: 20130207
  Receipt Date: 20130207
  Transmission Date: 20140127
  Serious: Yes (Hospitalization)
  Sender: FDA-Public Use
  Company Number: CA-B.I. PHARMACEUTICALS,INC./RIDGEFIELD-2013-CN-00173CN

PATIENT
  Age: 91 Year
  Sex: Female
  Weight: 63.5 kg

DRUGS (6)
  1. PRADAX [Suspect]
     Dosage: 220 MG
     Route: 048
  2. ARTHROTEC [Suspect]
     Dosage: 75 MG
     Route: 048
  3. ACTONEL [Concomitant]
  4. LASIX [Concomitant]
  5. LIPITOR [Concomitant]
  6. TELMISARTAN [Concomitant]

REACTIONS (5)
  - Abdominal distension [Unknown]
  - Abdominal distension [Unknown]
  - Gastrointestinal haemorrhage [Unknown]
  - Haemoglobin decreased [Unknown]
  - Rectal haemorrhage [Unknown]
